FAERS Safety Report 4675640-5 (Version None)
Quarter: 2005Q2

REPORT INFORMATION
  Report Type: 
  Country: None (occurrence: None)
  Receive Date: 20050527
  Receipt Date: 20040903
  Transmission Date: 20051028
  Serious: Yes (Life-Threatening, Hospitalization)
  Sender: FDA-Public Use
  Company Number: 200412023DE

PATIENT
  Age: 41 Year
  Sex: Male
  Weight: 80 kg

DRUGS (4)
  1. KETEK [Suspect]
     Indication: INFECTION
     Route: 048
     Dates: start: 20040528, end: 20040606
  2. KETEK [Suspect]
     Indication: TONSILLITIS
     Route: 048
     Dates: start: 20040528, end: 20040606
  3. HOMEOPATIC PREPARATION [Concomitant]
     Indication: INFECTION
     Dates: start: 20040501, end: 20040501
  4. HOMEOPATIC PREPARATION [Concomitant]
     Indication: SINUSITIS
     Dates: start: 20040501, end: 20040501

REACTIONS (4)
  - BRAIN OEDEMA [None]
  - CEREBRAL VENOUS THROMBOSIS [None]
  - HEADACHE [None]
  - SUBDURAL HAEMATOMA [None]
